FAERS Safety Report 9101403 (Version 5)
Quarter: 2013Q1

REPORT INFORMATION
  Report Type: Report from Study
  Country: DE (occurrence: DE)
  Receive Date: 20130218
  Receipt Date: 20130321
  Transmission Date: 20140127
  Serious: Yes (Death, Hospitalization)
  Sender: FDA-Public Use
  Company Number: DE-ROCHE-1031692

PATIENT
  Age: 62 Year
  Sex: Male
  Weight: 101 kg

DRUGS (10)
  1. TOCILIZUMAB [Suspect]
     Indication: RHEUMATOID ARTHRITIS
     Route: 042
     Dates: start: 20110920
  2. TOCILIZUMAB [Suspect]
     Route: 042
     Dates: start: 20111018
  3. TOCILIZUMAB [Suspect]
     Route: 042
     Dates: start: 20111115
  4. PREDNISOLON [Concomitant]
     Indication: RHEUMATOID ARTHRITIS
     Dosage: 25-30 MG
     Route: 065
     Dates: start: 201109
  5. VALORON [Concomitant]
     Route: 065
     Dates: start: 201108
  6. NOVAMIN [Concomitant]
     Route: 065
     Dates: start: 201108
  7. TOREM [Concomitant]
     Indication: OSTEOARTHRITIS
  8. XIPAMID [Concomitant]
     Indication: OSTEOARTHRITIS
  9. TAMSULOSIN [Concomitant]
  10. CALCILAC [Concomitant]
     Route: 065
     Dates: start: 201110

REACTIONS (3)
  - Sepsis [Fatal]
  - Multi-organ failure [Fatal]
  - Pneumonia [Recovered/Resolved]
